FAERS Safety Report 13914411 (Version 1)
Quarter: 2017Q3

REPORT INFORMATION
  Report Type: Spontaneous
  Country: US (occurrence: US)
  Receive Date: 20170828
  Receipt Date: 20170828
  Transmission Date: 20171127
  Serious: No
  Sender: FDA-Public Use
  Company Number: US-ROCHE-1140864

PATIENT
  Age: 16 Year
  Sex: Male
  Weight: 44 kg

DRUGS (5)
  1. RITALIN [Concomitant]
     Active Substance: METHYLPHENIDATE HYDROCHLORIDE
     Dosage: 3 TABLETS IN THE MORNING, 3 AT NOON AND 2 IN THE AFTERNOON.
     Route: 065
  2. AMITRIPTYLINE [Concomitant]
     Active Substance: AMITRIPTYLINE
     Dosage: TWO TABLETS AT 4PM, TWO TABLETS AT 8PM
     Route: 065
  3. LITHIUM. [Concomitant]
     Active Substance: LITHIUM
     Route: 065
  4. NUTROPIN AQ [Suspect]
     Active Substance: SOMATROPIN
     Indication: GROWTH RETARDATION
     Route: 058
     Dates: start: 19981210
  5. CLONIDINE. [Concomitant]
     Active Substance: CLONIDINE
     Dosage: T.I.D, TWO TABLETS TAKEN AT H.S.
     Route: 065

REACTIONS (1)
  - Testicular mass [Unknown]

NARRATIVE: CASE EVENT DATE: 20010522
